FAERS Safety Report 8112037 (Version 3)
Quarter: 2014Q3

REPORT INFORMATION
  Report Type: Spontaneous
  Country: TW (occurrence: TW)
  Receive Date: 20110830
  Receipt Date: 20140729
  Transmission Date: 20150326
  Serious: Yes (Hospitalization, Other)
  Sender: FDA-Public Use
  Company Number: TW-RANBAXY-2011RR-47040

PATIENT
  Age: 46 Year
  Sex: Female

DRUGS (1)
  1. ZOLPIDEM [Suspect]
     Active Substance: ZOLPIDEM\ZOLPIDEM TARTRATE
     Indication: ANXIETY DISORDER
     Dosage: 400 MG PER DAY
     Route: 065

REACTIONS (9)
  - Dyskinesia [Unknown]
  - Delirium [Recovering/Resolving]
  - Sinus tachycardia [Unknown]
  - Drug dependence [Not Recovered/Not Resolved]
  - Drug abuse [Unknown]
  - Convulsion [Recovered/Resolved]
  - Hallucination, visual [Unknown]
  - Psychotic behaviour [Recovering/Resolving]
  - Drug withdrawal syndrome [Recovering/Resolving]
